FAERS Safety Report 8123439-X (Version None)
Quarter: 2012Q1

REPORT INFORMATION
  Report Type: 
  Country: None (occurrence: None)
  Receive Date: 20120208
  Receipt Date: 20120130
  Transmission Date: 20120608
  Serious: Yes (Other)
  Sender: FDA-Public Use
  Company Number: PHHY2012MX008596

PATIENT
  Sex: Female

DRUGS (10)
  1. FOLIC ACID [Concomitant]
     Indication: GLUCOSE TOLERANCE IMPAIRED
     Dosage: 1 TABLET PER DAY
     Dates: start: 20110101
  2. METFORMIN HCL [Concomitant]
     Indication: GLUCOSE TOLERANCE IMPAIRED
     Dosage: 1 TABLET PER DAY
     Dates: start: 20110101
  3. METOPROLOL [Concomitant]
     Indication: HYPERTENSION
     Dosage: 1 TABLET PER DAY
     Dates: start: 20110101
  4. CLONAZEPAM [Concomitant]
     Indication: INSOMNIA
     Dosage: 10 DROPS EVERY 3 DAYS
  5. MONTELUKAST [Concomitant]
     Indication: ASTHMA
     Dosage: 1 TABLET PER DAY
     Dates: start: 20060101
  6. CELECOXIB [Concomitant]
     Indication: BONE PAIN
     Dosage: 1 TABLET PER DAY
     Dates: start: 20111001
  7. EXFORGE [Suspect]
     Indication: HYPERTENSION
     Dosage: 1 TABLET (160/5MG) DAILY
     Dates: start: 20110901
  8. CALCITRIOL [Concomitant]
     Indication: OSTEOARTHRITIS
     Dosage: 1 TABLET PER DAY
     Dates: start: 20110801
  9. ASCORBIC ACID [Concomitant]
     Indication: GLUCOSE TOLERANCE IMPAIRED
     Dosage: 1 DF PER DAY
     Dates: start: 20110101
  10. HYDROCHLOROTHIAZIDE [Concomitant]
     Indication: HYPERTENSION
     Dosage: 1 TABLET PER DAY
     Dates: start: 20111201

REACTIONS (2)
  - FOOT DEFORMITY [None]
  - MEMORY IMPAIRMENT [None]
